FAERS Safety Report 9004486 (Version 1)
Quarter: 2012Q4

REPORT INFORMATION
  Report Type: Spontaneous
  Country: PL (occurrence: None)
  Receive Date: 20121227
  Receipt Date: 20121227
  Transmission Date: 20130627
  Serious: Yes (Other)
  Sender: FDA-Public Use
  Company Number: 219898

PATIENT
  Sex: Male

DRUGS (2)
  1. DAIVOBET [Suspect]
  2. CLOBETESOLUM (CLOBETASOL) [Concomitant]

REACTIONS (1)
  - Toxic epidermal necrolysis [None]
